FAERS Safety Report 8112315-4 (Version None)
Quarter: 2012Q1

REPORT INFORMATION
  Report Type: 
  Country: None (occurrence: None)
  Receive Date: 20120203
  Receipt Date: 20120201
  Transmission Date: 20120608
  Serious: Yes (Life-Threatening, Hospitalization)
  Sender: FDA-Public Use
  Company Number: NO-SANOFI-AVENTIS-2012SA006907

PATIENT
  Age: 65 Year
  Sex: Female

DRUGS (3)
  1. FLUOROURACIL [Concomitant]
     Dosage: 995 MG - 950 MG
     Route: 065
  2. LEUCOVORIN CALCIUM [Concomitant]
     Route: 065
  3. OXALIPLATIN [Suspect]
     Dosage: 170 MG - 160 M
     Route: 065
     Dates: start: 20110113, end: 20110622

REACTIONS (4)
  - COGNITIVE DISORDER [None]
  - ACUTE RESPIRATORY FAILURE [None]
  - PULMONARY FIBROSIS [None]
  - HYPOXIA [None]
